FAERS Safety Report 4718161-3 (Version None)
Quarter: 2005Q3

REPORT INFORMATION
  Report Type: 
  Country: None (occurrence: None)
  Receive Date: 20050718
  Receipt Date: 20050718
  Transmission Date: 20060218
  Serious: Yes (Other)
  Sender: FDA-Public Use
  Company Number: None

PATIENT
  Age: 22 Year
  Sex: Male

DRUGS (3)
  1. FABRAZYME [Suspect]
     Indication: FABRY'S DISEASE
     Dosage: 70 MG IV Q 2 WEEKS
     Route: 042
  2. ACETAMINOPHEN [Concomitant]
  3. DIPHENHYDRAMINE HCL [Concomitant]

REACTIONS (4)
  - HYPOAESTHESIA [None]
  - INJECTION SITE ANAESTHESIA [None]
  - INJECTION SITE REACTION [None]
  - RASH ERYTHEMATOUS [None]
